FAERS Safety Report 21226842 (Version 1)
Quarter: 2022Q3

REPORT INFORMATION
  Report Type: Spontaneous
  Country: GB (occurrence: GB)
  Receive Date: 20220818
  Receipt Date: 20220818
  Transmission Date: 20221026
  Serious: Yes (Disabling, Other)
  Sender: FDA-Public Use
  Company Number: GB-MHRA-MED-202208051015014020-PDSKB

PATIENT

DRUGS (6)
  1. ZOLADEX [Suspect]
     Active Substance: GOSERELIN ACETATE
     Indication: Endometriosis
     Dosage: 120 UNK
     Route: 058
     Dates: start: 2014
  2. ZOLADEX [Suspect]
     Active Substance: GOSERELIN ACETATE
     Indication: Endometriosis
     Dosage: UNK
     Route: 065
  3. AMITRIPTYLINE [Concomitant]
     Active Substance: AMITRIPTYLINE
     Indication: Adverse drug reaction
     Dosage: UNK
     Route: 065
     Dates: start: 2015
  4. CODEINE [Concomitant]
     Active Substance: CODEINE
     Indication: Pain
     Dosage: UNK
     Route: 065
     Dates: start: 201404
  5. FEXOFENADINE [Concomitant]
     Active Substance: FEXOFENADINE HYDROCHLORIDE
     Indication: Adverse drug reaction
     Dosage: UNK
     Route: 065
     Dates: start: 2014
  6. PREGABALIN [Concomitant]
     Active Substance: PREGABALIN
     Indication: Adverse drug reaction
     Dosage: UNK
     Route: 065
     Dates: start: 2015

REACTIONS (30)
  - Thyroid neoplasm [Not Recovered/Not Resolved]
  - Conversion disorder [Not Recovered/Not Resolved]
  - Limb discomfort [Not Recovered/Not Resolved]
  - Muscle disorder [Not Recovered/Not Resolved]
  - Hypoacusis [Recovering/Resolving]
  - Scleroedema [Not Recovered/Not Resolved]
  - Thyroid disorder [Not Recovered/Not Resolved]
  - Thyroid cyst [Not Recovered/Not Resolved]
  - Contusion [Not Recovered/Not Resolved]
  - Specialist consultation [Not Recovered/Not Resolved]
  - Feeling abnormal [Not Recovered/Not Resolved]
  - Depressed mood [Not Recovered/Not Resolved]
  - Anxiety disorder [Recovered/Resolved]
  - Myalgia [Not Recovered/Not Resolved]
  - Dyspnoea [Recovered/Resolved]
  - Fatigue [Not Recovered/Not Resolved]
  - Insomnia [Not Recovered/Not Resolved]
  - Hyperhidrosis [Not Recovered/Not Resolved]
  - Sexual dysfunction [Not Recovered/Not Resolved]
  - Joint stiffness [Not Recovered/Not Resolved]
  - Pain [Not Recovered/Not Resolved]
  - Weight increased [Recovered/Resolved]
  - Vulvovaginal dryness [Not Recovered/Not Resolved]
  - Paraesthesia [Not Recovered/Not Resolved]
  - Vaginal haemorrhage [Recovered/Resolved]
  - Bone pain [Not Recovered/Not Resolved]
  - Urticaria [Not Recovered/Not Resolved]
  - Depression [Recovered/Resolved]
  - Needle issue [Not Recovered/Not Resolved]
  - Medication error [Unknown]

NARRATIVE: CASE EVENT DATE: 20140101
